FAERS Safety Report 21332684 (Version 5)
Quarter: 2022Q4

REPORT INFORMATION
  Report Type: Spontaneous
  Country: AR (occurrence: AR)
  Receive Date: 20220914
  Receipt Date: 20221130
  Transmission Date: 20230112
  Serious: No
  Sender: FDA-Public Use
  Company Number: AR-PFIZER INC-PV202200049807

PATIENT
  Age: 8 Year
  Sex: Male

DRUGS (1)
  1. GENOTROPIN [Suspect]
     Active Substance: SOMATROPIN
     Indication: Foetal growth restriction
     Dosage: 1 TO 1.4 MG 6 TIMES PER WEEK
     Dates: start: 20180216

REACTIONS (8)
  - Device information output issue [Unknown]
  - Needle issue [Unknown]
  - Device occlusion [Unknown]
  - Poor quality device used [Unknown]
  - Device use issue [Unknown]
  - Administration site pain [Unknown]
  - Injection site discharge [Unknown]
  - Off label use [Unknown]

NARRATIVE: CASE EVENT DATE: 20180216
